FAERS Safety Report 18099334 (Version 1)
Quarter: 2020Q3

REPORT INFORMATION
  Report Type: Spontaneous
  Country: US (occurrence: US)
  Receive Date: 20200731
  Receipt Date: 20200731
  Transmission Date: 20201103
  Serious: No
  Sender: FDA-Public Use
  Company Number: None

PATIENT
  Sex: Female

DRUGS (1)
  1. GOLDESSENSE WELLNESS SOOTHING GEL HAND SANITZER [Suspect]
     Active Substance: ALCOHOL
     Indication: INFECTION PROPHYLAXIS
     Dosage: ?          QUANTITY:1 PUMP DISPENSER;?
     Route: 061
     Dates: start: 20200701, end: 20200731

REACTIONS (2)
  - Malaise [None]
  - Recalled product [None]
